FAERS Safety Report 13207081 (Version 14)
Quarter: 2019Q2

REPORT INFORMATION
  Report Type: Spontaneous
  Country: US (occurrence: US)
  Receive Date: 20170209
  Receipt Date: 20190530
  Transmission Date: 20190711
  Serious: No
  Sender: FDA-Public Use
  Company Number: US-SA-2016SA206663

PATIENT
  Age: 71 Year
  Sex: Female

DRUGS (4)
  1. ALIROCUMAB PREFILLED PEN [Suspect]
     Active Substance: ALIROCUMAB
     Indication: HYPERLIPIDAEMIA
     Dosage: 75 MG, QOW
     Route: 058
     Dates: start: 20160927
  2. ALIROCUMAB PREFILLED PEN [Suspect]
     Active Substance: ALIROCUMAB
     Indication: HYPERCHOLESTEROLAEMIA
  3. PRALUENT [Suspect]
     Active Substance: ALIROCUMAB
     Indication: HYPERCHOLESTEROLAEMIA
  4. PRALUENT [Suspect]
     Active Substance: ALIROCUMAB
     Indication: HYPERLIPIDAEMIA
     Dosage: 75 MG,QOW
     Route: 058
     Dates: start: 20160927

REACTIONS (16)
  - Muscle spasms [Unknown]
  - Dizziness [Unknown]
  - Bronchitis [Unknown]
  - Hypersensitivity [Unknown]
  - Malaise [Unknown]
  - Nasopharyngitis [Unknown]
  - Injection site pruritus [Unknown]
  - Oropharyngeal pain [Unknown]
  - Injection site erythema [Unknown]
  - Rhinorrhoea [Unknown]
  - Erythema [Unknown]
  - Feeling hot [Unknown]
  - Influenza [Unknown]
  - Injection site swelling [Unknown]
  - Injection site bruising [Unknown]
  - Injection site warmth [Unknown]

NARRATIVE: CASE EVENT DATE: 2016
